FAERS Safety Report 9875469 (Version 1)
Quarter: 2013Q2

REPORT INFORMATION
  Report Type: Spontaneous
  Country: US (occurrence: None)
  Receive Date: 20121107
  Receipt Date: 20121107
  Transmission Date: 20140414
  Serious: No
  Sender: FDA-Public Use
  Company Number: 2012HGS-003767

PATIENT
  Age: 56 Year
  Sex: Female

DRUGS (1)
  1. BENLYSTA [Suspect]
     Indication: SYSTEMIC LUPUS ERYTHEMATOSUS
     Dates: start: 20120327

REACTIONS (8)
  - Tongue blistering [None]
  - Abdominal discomfort [None]
  - Dysgeusia [None]
  - Infusion related reaction [None]
  - Pruritus [None]
  - Pharyngeal oedema [None]
  - Migraine [None]
  - Diarrhoea [None]
